FAERS Safety Report 24603767 (Version 1)
Quarter: 2024Q4

REPORT INFORMATION
  Report Type: Spontaneous
  Country: US (occurrence: US)
  Receive Date: 20241111
  Receipt Date: 20241111
  Transmission Date: 20250114
  Serious: Yes (Hospitalization, Other)
  Sender: LUNDBECK
  Company Number: US-LUNDBECK-DKLU4004323

PATIENT

DRUGS (11)
  1. SABRIL [Suspect]
     Active Substance: VIGABATRIN
     Indication: Infantile spasms
     Dosage: 500 MILLIGRAM
     Route: 048
     Dates: start: 202306
  2. CLOBAZAM [Concomitant]
     Active Substance: CLOBAZAM
     Indication: Epilepsy
     Dosage: 6.25 MILLIGRAM
     Route: 048
     Dates: start: 20240523
  3. CLOBAZAM [Concomitant]
     Active Substance: CLOBAZAM
     Dosage: 6.25 MILLIGRAM
     Dates: start: 20240930
  4. CLONAZEPAM [Concomitant]
     Active Substance: CLONAZEPAM
     Indication: Epilepsy
     Dosage: 0.5 DOSAGE FORM
     Route: 048
     Dates: start: 20240614
  5. CLONAZEPAM [Concomitant]
     Active Substance: CLONAZEPAM
     Dosage: 1 DOSAGE FORM
     Dates: start: 20240930
  6. FLUTICASONE PROPIONATE [Concomitant]
     Active Substance: FLUTICASONE PROPIONATE
     Indication: Product used for unknown indication
     Dosage: ADMINISTER 1 SPRAY INTO EACH NOSTRIL DAILY
     Route: 045
     Dates: start: 20240423
  7. GABAPENTIN [Concomitant]
     Active Substance: GABAPENTIN
     Indication: Product used for unknown indication
     Dosage: 1.4 MILLILITRE
     Route: 048
     Dates: start: 20240523
  8. IBUPROFEN [Concomitant]
     Active Substance: IBUPROFEN
     Indication: Pyrexia
     Dosage: 6.2 MILLILITRE
     Route: 048
     Dates: start: 20240930
  9. IBUPROFEN [Concomitant]
     Active Substance: IBUPROFEN
     Indication: Pain
  10. KEPPRA [Concomitant]
     Active Substance: LEVETIRACETAM
     Indication: Epilepsy
     Dosage: 5 MILLILITRE
     Route: 048
     Dates: start: 20240930
  11. EPIDIOLEX [Concomitant]
     Active Substance: CANNABIDIOL
     Indication: Epilepsy
     Dosage: 90 MILLIGRAM
     Route: 048
     Dates: start: 20240919

REACTIONS (3)
  - Acute respiratory failure [Recovered/Resolved]
  - Status epilepticus [Unknown]
  - Seizure [Unknown]

NARRATIVE: CASE EVENT DATE: 20240909
